FAERS Safety Report 20627986 (Version 1)
Quarter: 2022Q1

REPORT INFORMATION
  Report Type: Spontaneous
  Country: CN (occurrence: CN)
  Receive Date: 20220323
  Receipt Date: 20220323
  Transmission Date: 20220423
  Serious: Yes (Life-Threatening, Other)
  Sender: FDA-Public Use
  Company Number: CN-BAYER-2022A042308

PATIENT
  Age: 65 Year
  Sex: Male

DRUGS (2)
  1. IOPROMIDE [Suspect]
     Active Substance: IOPROMIDE
     Indication: Computerised tomogram thorax
     Dosage: 40 ML, ONCE
     Route: 042
     Dates: start: 20220315, end: 20220315
  2. IOPROMIDE [Suspect]
     Active Substance: IOPROMIDE
     Indication: Aortogram

REACTIONS (7)
  - Dyspnoea [Recovering/Resolving]
  - Tracheal obstruction [Recovering/Resolving]
  - Oxygen saturation decreased [Recovering/Resolving]
  - Chills [Recovering/Resolving]
  - Tachypnoea [Recovering/Resolving]
  - Cyanosis [Recovering/Resolving]
  - Breath sounds abnormal [Recovering/Resolving]

NARRATIVE: CASE EVENT DATE: 20220315
